FAERS Safety Report 8622704-7 (Version None)
Quarter: 2012Q3

REPORT INFORMATION
  Report Type: 
  Country: None (occurrence: None)
  Receive Date: 20120827
  Receipt Date: 20120816
  Transmission Date: 20120928
  Serious: Yes (Hospitalization)
  Sender: FDA-Public Use
  Company Number: US-BAYER-2012-037656

PATIENT
  Age: 45 Year
  Sex: Female
  Weight: 65.079 kg

DRUGS (17)
  1. MACROBID [Concomitant]
     Dosage: 100 MG, BID
     Route: 048
     Dates: start: 20111109, end: 20111111
  2. OXYCODONE HCL [Concomitant]
     Dosage: UNK
     Dates: start: 20100201, end: 20110101
  3. PERCOCET [Concomitant]
  4. YASMIN [Suspect]
     Indication: CONTRACEPTION
     Dosage: UNK
     Dates: start: 20080201, end: 20110501
  5. MACROBID [Concomitant]
     Dosage: 100 MG, BID
     Route: 048
     Dates: start: 20111107
  6. TIZANIDINE HYDROCHLORIDE [Concomitant]
     Dosage: UNK
     Dates: start: 20100101, end: 20110101
  7. FLEXERIL [Concomitant]
  8. DROSPIRENONE AND ETHINYL ESTRADIOL [Suspect]
     Indication: CONTRACEPTION
     Dosage: UNK
     Dates: start: 20110601, end: 20111101
  9. ACETAMINOPHEN [Concomitant]
  10. ADVIL [Concomitant]
  11. OXYCONTIN [Concomitant]
     Dosage: UNK
     Dates: start: 20100201, end: 20110101
  12. CLONIDINE [Concomitant]
  13. XANADENE [Concomitant]
  14. CYCLOBENZAPRINE [Concomitant]
     Dosage: UNK
     Dates: start: 20100201, end: 20110101
  15. NEURONTIN [Concomitant]
  16. ASPIRIN [Concomitant]
  17. VALIUM [Concomitant]

REACTIONS (8)
  - DEEP VEIN THROMBOSIS [None]
  - ANXIETY [None]
  - PULMONARY EMBOLISM [None]
  - GENERAL PHYSICAL HEALTH DETERIORATION [None]
  - PULMONARY INFARCTION [None]
  - INJURY [None]
  - EMOTIONAL DISTRESS [None]
  - PAIN [None]
